FAERS Safety Report 17004667 (Version 2)
Quarter: 2020Q4

REPORT INFORMATION
  Report Type: Spontaneous
  Country: DE (occurrence: DE)
  Receive Date: 20191107
  Receipt Date: 20201118
  Transmission Date: 20210113
  Serious: Yes (Life-Threatening, Hospitalization, Other)
  Sender: FDA-Public Use
  Company Number: DE-EISAI MEDICAL RESEARCH-EC-2019-062388

PATIENT
  Age: 73 Year
  Sex: Female
  Weight: 55 kg

DRUGS (5)
  1. KISPLYX [Suspect]
     Active Substance: LENVATINIB
     Route: 048
     Dates: start: 20190712, end: 20190818
  2. AFINITOR [Suspect]
     Active Substance: EVEROLIMUS
     Indication: RENAL CELL CARCINOMA
     Route: 065
     Dates: start: 201906, end: 20190711
  3. KISPLYX [Suspect]
     Active Substance: LENVATINIB
     Indication: RENAL CELL CARCINOMA
     Route: 048
     Dates: start: 20190627, end: 20190711
  4. KISPLYX [Suspect]
     Active Substance: LENVATINIB
     Route: 048
     Dates: start: 20190819
  5. AFINITOR [Suspect]
     Active Substance: EVEROLIMUS
     Dosage: REDUCED DOSE (FREQUENCY UNKNOWN)
     Route: 065
     Dates: start: 20190712, end: 2019

REACTIONS (5)
  - Leukopenia [Recovering/Resolving]
  - Neutropenia [Recovering/Resolving]
  - Impaired healing [Recovering/Resolving]
  - Diarrhoea [Unknown]
  - Renal failure [Recovering/Resolving]

NARRATIVE: CASE EVENT DATE: 2019
